FAERS Safety Report 23475236 (Version 1)
Quarter: 2024Q1

REPORT INFORMATION
  Report Type: Report from Study
  Country: US (occurrence: US)
  Receive Date: 20240204
  Receipt Date: 20240204
  Transmission Date: 20240409
  Serious: No
  Sender: FDA-Public Use
  Company Number: US-EXELIXIS-CABO-22058786

PATIENT
  Sex: Male

DRUGS (6)
  1. CABOMETYX [Suspect]
     Active Substance: CABOZANTINIB S-MALATE
     Indication: Renal cell carcinoma
     Dosage: 20 MG, QD
     Route: 048
     Dates: start: 20220620
  2. CABOMETYX [Suspect]
     Active Substance: CABOZANTINIB S-MALATE
     Dosage: 20 MG, QOD (EVERY OTHER DAY)
     Route: 048
     Dates: end: 20221214
  3. OPDIVO [Concomitant]
     Active Substance: NIVOLUMAB
  4. SILDENAFIL [Concomitant]
     Active Substance: SILDENAFIL
  5. ONDANSETRON [Concomitant]
     Active Substance: ONDANSETRON
  6. ALEVE [Concomitant]
     Active Substance: NAPROXEN SODIUM

REACTIONS (3)
  - Metastases to lung [Unknown]
  - Haemoptysis [Recovering/Resolving]
  - Inappropriate schedule of product administration [Unknown]
